FAERS Safety Report 4788897-7 (Version None)
Quarter: 2005Q4

REPORT INFORMATION
  Report Type: 
  Country: None (occurrence: None)
  Receive Date: 20051004
  Receipt Date: 20050927
  Transmission Date: 20060501
  Serious: Yes (Hospitalization)
  Sender: FDA-Public Use
  Company Number: GXKR2005IT01677

PATIENT
  Age: 90 Year
  Sex: Female

DRUGS (4)
  1. AMIODARONE HCL [Suspect]
     Indication: ARRHYTHMIA
     Dosage: 200 MG, ORAL
     Route: 048
     Dates: start: 20041030, end: 20050524
  2. RAMIPRIL [Suspect]
     Dosage: 1,25 MG, ORAL
     Route: 048
     Dates: start: 20041030, end: 20050906
  3. SPIROFUR (FUROSEMIDE, SPIRONOLACTONE) [Suspect]
     Dosage: 1 IU IN MILLION, QOD, ORAL
     Route: 048
     Dates: start: 20040418, end: 20050514
  4. NORVASC [Concomitant]

REACTIONS (5)
  - ASTHENIA [None]
  - FALL [None]
  - HYPOTHYROIDISM [None]
  - POSTURE ABNORMAL [None]
  - TREMOR [None]
